FAERS Safety Report 9192403 (Version 3)
Quarter: 2013Q2

REPORT INFORMATION
  Report Type: Spontaneous
  Country: DE (occurrence: DE)
  Receive Date: 20130327
  Receipt Date: 20130517
  Transmission Date: 20140414
  Serious: Yes (Death, Hospitalization)
  Sender: FDA-Public Use
  Company Number: DE-JNJFOC-20130315352

PATIENT
  Sex: Female
  Weight: 61 kg

DRUGS (3)
  1. IMODIUM AKUT [Suspect]
     Indication: DIARRHOEA
     Dosage: 3 TO 6 CAPSULES DAILY
     Route: 048
     Dates: start: 20120723, end: 20120726
  2. MCP [Concomitant]
     Indication: PRODUCT USED FOR UNKNOWN INDICATION
     Route: 048
  3. PANTOPRAZOLE [Concomitant]
     Indication: PRODUCT USED FOR UNKNOWN INDICATION
     Route: 065

REACTIONS (4)
  - Sudden cardiac death [Fatal]
  - Drug ineffective [Not Recovered/Not Resolved]
  - Product quality issue [None]
  - Diarrhoea [None]
